FAERS Safety Report 23013437 (Version 4)
Quarter: 2024Q4

REPORT INFORMATION
  Report Type: Spontaneous
  Country: US (occurrence: US)
  Receive Date: 20231001
  Receipt Date: 20241218
  Transmission Date: 20250115
  Serious: No
  Sender: SANOFI AVENTIS
  Company Number: US-SA-SAC20230927000965

PATIENT
  Age: 2 Year
  Sex: Female
  Weight: 32.653 kg

DRUGS (3)
  1. LUMIZYME [Suspect]
     Active Substance: ALGLUCOSIDASE ALFA
     Indication: Glycogen storage disease type II
     Dosage: 700 MG, QOW
     Route: 042
     Dates: start: 202108
  2. LUMIZYME [Suspect]
     Active Substance: ALGLUCOSIDASE ALFA
     Dosage: 1150 MG, QOW
     Route: 042
  3. LUMIZYME [Suspect]
     Active Substance: ALGLUCOSIDASE ALFA
     Dosage: 1300 MG, QOW
     Route: 042

REACTIONS (2)
  - Weight increased [Unknown]
  - Fear of injection [Unknown]

NARRATIVE: CASE EVENT DATE: 20230101
